FAERS Safety Report 5177547-6 (Version None)
Quarter: 2006Q4

REPORT INFORMATION
  Report Type: 
  Country: None (occurrence: None)
  Receive Date: 20061218
  Receipt Date: 20061005
  Transmission Date: 20070319
  Serious: Yes (Other)
  Sender: FDA-Public Use
  Company Number: US-BOEHRINGER INGELHEIM PHARMACEUTICALS, INC.-2006-BP-11693BP

PATIENT
  Age: 85 Year
  Sex: Male
  Weight: 64.86 kg

DRUGS (3)
  1. FLOMAX [Suspect]
     Route: 048
     Dates: end: 20060623
  2. CASODEX [Concomitant]
     Route: 048
     Dates: start: 20060111
  3. LUPRON [Concomitant]
     Dates: start: 20060316

REACTIONS (2)
  - HYPHAEMA [None]
  - PROSTATE CANCER METASTATIC [None]
